FAERS Safety Report 20263427 (Version 1)
Quarter: 2021Q4

REPORT INFORMATION
  Report Type: Spontaneous
  Country: US (occurrence: US)
  Receive Date: 20211231
  Receipt Date: 20211231
  Transmission Date: 20220303
  Serious: Yes (Other)
  Sender: FDA-Public Use
  Company Number: US-GLENMARK PHARMACEUTICALS-2021GMK069554

PATIENT

DRUGS (1)
  1. OXCARBAZEPINE [Suspect]
     Active Substance: OXCARBAZEPINE
     Indication: Seizure
     Dosage: UNK
     Route: 048

REACTIONS (4)
  - Loss of consciousness [Unknown]
  - Product appearance confusion [Unknown]
  - Feeling drunk [Unknown]
  - Feeling abnormal [Unknown]
